FAERS Safety Report 19259725 (Version 1)
Quarter: 2021Q2

REPORT INFORMATION
  Report Type: Spontaneous
  Country: GB (occurrence: GB)
  Receive Date: 20210514
  Receipt Date: 20210514
  Transmission Date: 20210717
  Serious: Yes (Other)
  Sender: FDA-Public Use
  Company Number: GB-PFIZER INC-2021507891

PATIENT
  Age: 49 Year
  Sex: Male
  Weight: 85 kg

DRUGS (10)
  1. CLARITHROMYCIN. [Concomitant]
     Active Substance: CLARITHROMYCIN
     Dosage: 1 DF, 2X/DAY
     Dates: start: 20210427, end: 20210504
  2. PREGABALIN. [Concomitant]
     Active Substance: PREGABALIN
     Dosage: 1 DF, 2X/DAY
     Dates: start: 20210114
  3. CLINDAMYCIN HCL [Suspect]
     Active Substance: CLINDAMYCIN HYDROCHLORIDE
     Dosage: 150 MG
     Dates: start: 20210427
  4. BETNOVATE [Concomitant]
     Active Substance: BETAMETHASONE
     Dosage: 1 DF, 2X/DAY APPLY TWICE DAILY FOR 2 WEEKS
     Dates: start: 20210427
  5. THIAMINE. [Concomitant]
     Active Substance: THIAMINE
     Dosage: TAKE ONE TWICE A DAY WHILST DRINKING ALCOHOL
     Dates: start: 20200826
  6. E45 [Concomitant]
     Active Substance: LANOLIN\LIGHT MINERAL OIL\PARAFFIN
     Dosage: WASH HANDS WHEN NEEDED
     Dates: start: 20210427
  7. RIVAROXABAN [Concomitant]
     Active Substance: RIVAROXABAN
     Dosage: TAKE ONE DAILY WITH FOOD TO PREVENT BLOOD CLOTS
     Dates: start: 20201006
  8. BIQUELLE XL [Concomitant]
     Active Substance: QUETIAPINE FUMARATE
     Dosage: TAKE ONE DAILY EVERY NIGHT
     Dates: start: 20210114
  9. HYDROCORTISONE. [Concomitant]
     Active Substance: HYDROCORTISONE
     Dosage: 1 DF, 2X/DAY
     Dates: start: 20210312, end: 20210409
  10. VITAMIN B SUBSTANCES [Concomitant]
     Dosage: TAKE ONE 3 TIMES A DAY WHILST DRINKING ALCOHOL
     Dates: start: 20200826

REACTIONS (1)
  - Rash [Recovered/Resolved]

NARRATIVE: CASE EVENT DATE: 20210504
